FAERS Safety Report 19762063 (Version 1)
Quarter: 2021Q3

REPORT INFORMATION
  Report Type: Spontaneous
  Country: None (occurrence: GB)
  Receive Date: 20210827
  Receipt Date: 20210827
  Transmission Date: 20211014
  Serious: Yes (Death, Life-Threatening, Hospitalization, Disabling, Other)
  Sender: FDA-Public Use
  Company Number: GB-COVIS PHARMA GMBH-2021COV23780

PATIENT
  Age: 27 Year
  Sex: Female

DRUGS (3)
  1. PRILOSEC [Suspect]
     Active Substance: OMEPRAZOLE MAGNESIUM
     Indication: RENAL FAILURE
     Route: 048
  2. PRILOSEC [Suspect]
     Active Substance: OMEPRAZOLE MAGNESIUM
     Indication: PRODUCT USE IN UNAPPROVED INDICATION
  3. TACROLIMUS. [Suspect]
     Active Substance: TACROLIMUS
     Indication: KIDNEY TRANSPLANT REJECTION

REACTIONS (9)
  - Circulatory collapse [Unknown]
  - Blood magnesium decreased [Unknown]
  - Renal impairment [Unknown]
  - Brain oedema [Fatal]
  - Drug interaction [Unknown]
  - Blood calcium decreased [Unknown]
  - Product use in unapproved indication [Fatal]
  - Acidosis [Fatal]
  - Death [Fatal]

NARRATIVE: CASE EVENT DATE: 201610
